FAERS Safety Report 14842164 (Version 1)
Quarter: 2018Q2

REPORT INFORMATION
  Report Type: Spontaneous
  Country: US (occurrence: US)
  Receive Date: 20180418
  Receipt Date: 20180418
  Transmission Date: 20180711
  Serious: Yes (Death, Hospitalization)
  Sender: FDA-Public Use
  Company Number: None

PATIENT
  Age: 54 Year
  Sex: Female
  Weight: 55.1 kg

DRUGS (4)
  1. BEVACIZUMAB (RHUMAB VEGF) [Suspect]
     Active Substance: BEVACIZUMAB
     Dates: end: 20180314
  2. LISINOPRIL. [Concomitant]
     Active Substance: LISINOPRIL
  3. GLUCOSAMINE [Concomitant]
     Active Substance: GLUCOSAMINE
  4. KEPPRA [Concomitant]
     Active Substance: LEVETIRACETAM

REACTIONS (9)
  - Anaemia [None]
  - Contusion [None]
  - Cerebral haemorrhage [None]
  - Lethargy [None]
  - Platelet count decreased [None]
  - Transaminases increased [None]
  - Depressed level of consciousness [None]
  - Fall [None]
  - Blood glucose increased [None]

NARRATIVE: CASE EVENT DATE: 20180411
